FAERS Safety Report 24903770 (Version 4)
Quarter: 2025Q4

REPORT INFORMATION
  Report Type: Spontaneous
  Country: AU (occurrence: AU)
  Receive Date: 20250130
  Receipt Date: 20251203
  Transmission Date: 20260118
  Serious: Yes (Death, Hospitalization, Other)
  Sender: ALEXION PHARMACEUTICALS
  Company Number: AU-SA-2025SA023307

PATIENT
  Sex: Female

DRUGS (1)
  1. NIRSEVIMAB [Suspect]
     Active Substance: NIRSEVIMAB
     Dosage: UNK
     Dates: start: 20240719, end: 20240719

REACTIONS (16)
  - Bradycardia [Fatal]
  - Demyelination [Fatal]
  - Seizure [Fatal]
  - Hypoxic-ischaemic encephalopathy [Fatal]
  - Generalised tonic-clonic seizure [Fatal]
  - Hypothermia [Unknown]
  - Apnoea [Unknown]
  - Influenza [Unknown]
  - Oxygen saturation decreased [Unknown]
  - Lethargy [Unknown]
  - Irritability [Unknown]
  - Anaemia [Unknown]
  - Poor feeding infant [Unknown]
  - Posturing [Unknown]
  - Eye movement disorder [Unknown]
  - Hypertonia [Unknown]

NARRATIVE: CASE EVENT DATE: 20240722
